FAERS Safety Report 8902867 (Version 2)
Quarter: 2013Q2

REPORT INFORMATION
  Report Type: Report from Study
  Country: US (occurrence: US)
  Receive Date: 20121113
  Receipt Date: 20130502
  Transmission Date: 20140414
  Serious: Yes (Other)
  Sender: FDA-Public Use
  Company Number: US-UCBSA-070702

PATIENT
  Sex: Female

DRUGS (7)
  1. KEPPRA XR [Suspect]
     Indication: EPILEPSY
     Dosage: 3500
     Dates: start: 20111024
  2. KEPPRA XR [Suspect]
     Indication: EPILEPSY
     Dosage: 3000
     Dates: end: 20111024
  3. TRILEPTAL [Concomitant]
     Indication: EPILEPSY
     Dosage: DOSE: 1500
     Dates: end: 20110818
  4. TRILEPTAL [Concomitant]
     Indication: EPILEPSY
     Dosage: DOSE: 1650
     Dates: start: 20110818, end: 20111024
  5. TRILEPTAL [Concomitant]
     Indication: EPILEPSY
     Dosage: DOSE: 1800
     Dates: start: 20111024
  6. TRILEPTAL [Concomitant]
     Indication: EPILEPSY
     Dosage: DOSE: 2100
  7. ATIVAN [Concomitant]
     Indication: EPILEPSY

REACTIONS (3)
  - Premature delivery [Unknown]
  - Oligohydramnios [Recovered/Resolved]
  - Pregnancy [Recovered/Resolved]
